FAERS Safety Report 6557329-0 (Version None)
Quarter: 2010Q1

REPORT INFORMATION
  Report Type: 
  Country: None (occurrence: None)
  Receive Date: 20100128
  Receipt Date: 20100128
  Transmission Date: 20100710
  Serious: Yes (Other)
  Sender: FDA-Public Use
  Company Number: None

PATIENT
  Age: 29 Year
  Sex: Female

DRUGS (2)
  1. ROLAIDS X-STRENGTH [Suspect]
     Indication: DYSPEPSIA
     Dosage: 2 TABLETS 1 TIME
     Dates: start: 20100117, end: 20100117
  2. ROLAIDS X-STRENGTH [Suspect]
     Indication: DYSPEPSIA
     Dosage: 2 TABLETS 1 TIME
     Dates: start: 20100124, end: 20100124

REACTIONS (3)
  - ABDOMINAL PAIN UPPER [None]
  - DIARRHOEA [None]
  - NAUSEA [None]
